FAERS Safety Report 8830240 (Version 1)
Quarter: 2012Q4

REPORT INFORMATION
  Report Type: Spontaneous
  Country: US (occurrence: None)
  Receive Date: 20121009
  Receipt Date: 20121009
  Transmission Date: 20130627
  Serious: Yes (Hospitalization)
  Sender: FDA-Public Use
  Company Number: None

PATIENT
  Age: 28 Year
  Sex: Female
  Weight: 90.7 kg

DRUGS (1)
  1. METHYLPREDNISOLONE [Suspect]
     Route: 008

REACTIONS (1)
  - Headache [None]
